FAERS Safety Report 10428683 (Version 1)
Quarter: 2014Q3

REPORT INFORMATION
  Report Type: Spontaneous
  Country: FR (occurrence: None)
  Receive Date: 20140829
  Receipt Date: 20140829
  Transmission Date: 20150326
  Serious: Yes (Other)
  Sender: FDA-Public Use
  Company Number: NSR_01614_2014

PATIENT
  Age: 66 Year
  Sex: Male

DRUGS (3)
  1. BACLOFEN (BACLOFEN) [Suspect]
     Active Substance: BACLOFEN
     Indication: ALCOHOLISM
     Dosage: [INCREASED ON DAY 71])
  2. DISULFIRAM. [Concomitant]
     Active Substance: DISULFIRAM
  3. DIAZEPAM. [Concomitant]
     Active Substance: DIAZEPAM

REACTIONS (5)
  - Aggression [None]
  - Disinhibition [None]
  - Irritability [None]
  - Cerebral hypoperfusion [None]
  - Electroencephalogram abnormal [None]
